FAERS Safety Report 13642188 (Version 1)
Quarter: 2017Q2

REPORT INFORMATION
  Report Type: Spontaneous
  Country: IT (occurrence: IT)
  Receive Date: 20170612
  Receipt Date: 20170612
  Transmission Date: 20170830
  Serious: Yes (Other)
  Sender: FDA-Public Use
  Company Number: IT-AUROBINDO-AUR-APL-2017-35170

PATIENT
  Age: 43 Year
  Sex: Female

DRUGS (1)
  1. CITALOPRAM ORAL DROPS [Suspect]
     Active Substance: CITALOPRAM HYDROBROMIDE
     Indication: PRODUCT USED FOR UNKNOWN INDICATION
     Dosage: 10 ML, TOTAL
     Route: 048
     Dates: start: 20170503, end: 20170503

REACTIONS (1)
  - Sopor [Recovering/Resolving]

NARRATIVE: CASE EVENT DATE: 20170503
